FAERS Safety Report 16746698 (Version 2)
Quarter: 2021Q2

REPORT INFORMATION
  Report Type: Spontaneous
  Country: PT (occurrence: PT)
  Receive Date: 20190827
  Receipt Date: 20210513
  Transmission Date: 20210716
  Serious: Yes (Congenital Anomaly, Other)
  Sender: FDA-Public Use
  Company Number: PHHY2019PT194512

PATIENT
  Age: 15 Year
  Sex: Female

DRUGS (2)
  1. IBUPROFEN. [Suspect]
     Active Substance: IBUPROFEN
     Indication: ABDOMINAL PAIN LOWER
     Dosage: UNK
     Route: 065
  2. IBUPROFEN. [Suspect]
     Active Substance: IBUPROFEN
     Indication: DYSMENORRHOEA

REACTIONS (6)
  - Vaginal atresia [Recovered/Resolved]
  - Renal aplasia [Recovered/Resolved]
  - Drug ineffective [Not Recovered/Not Resolved]
  - Congenital uterine anomaly [Recovered/Resolved]
  - Haematosalpinx [Recovered/Resolved]
  - Congenital genital malformation female [Recovered/Resolved]
